FAERS Safety Report 20245876 (Version 1)
Quarter: 2021Q4

REPORT INFORMATION
  Report Type: Spontaneous
  Country: US (occurrence: US)
  Receive Date: 20211229
  Receipt Date: 20211229
  Transmission Date: 20220303
  Serious: Yes (Other)
  Sender: FDA-Public Use
  Company Number: US-SUN PHARMACEUTICAL INDUSTRIES LTD-2021R1-322175

PATIENT
  Age: 41 Year
  Sex: Female

DRUGS (1)
  1. ACETAMINOPHEN [Suspect]
     Active Substance: ACETAMINOPHEN
     Indication: Product used for unknown indication
     Dosage: UNK UNK, Q4H (1000 MG TO 2000 MG)
     Route: 065

REACTIONS (4)
  - Exposure during pregnancy [Not Recovered/Not Resolved]
  - Acute fatty liver of pregnancy [Recovering/Resolving]
  - Overdose [Unknown]
  - Live birth [Not Recovered/Not Resolved]
